FAERS Safety Report 21509049 (Version 2)
Quarter: 2023Q1

REPORT INFORMATION
  Report Type: Report from Study
  Country: US (occurrence: US)
  Receive Date: 20221026
  Receipt Date: 20230116
  Transmission Date: 20230418
  Serious: No
  Sender: FDA-Public Use
  Company Number: US-ABBVIE-4168466

PATIENT
  Sex: Female

DRUGS (1)
  1. IMBRUVICA [Suspect]
     Active Substance: IBRUTINIB
     Indication: Chronic lymphocytic leukaemia
     Route: 048

REACTIONS (5)
  - Hair disorder [Not Recovered/Not Resolved]
  - Hair growth abnormal [Unknown]
  - Blood test abnormal [Unknown]
  - Trichorrhexis [Unknown]
  - Nail disorder [Not Recovered/Not Resolved]
